FAERS Safety Report 20840494 (Version 1)
Quarter: 2022Q2

REPORT INFORMATION
  Report Type: Spontaneous
  Country: None (occurrence: BE)
  Receive Date: 20220517
  Receipt Date: 20220517
  Transmission Date: 20220720
  Serious: Yes (Other)
  Sender: FDA-Public Use
  Company Number: BE-B.Braun Medical Inc.-2128866

PATIENT
  Sex: Female

DRUGS (2)
  1. ACETAMINOPHEN [Suspect]
     Active Substance: ACETAMINOPHEN
  2. COLCHICINE [Suspect]
     Active Substance: COLCHICINE

REACTIONS (12)
  - Fatigue [Unknown]
  - Lymphadenopathy [Unknown]
  - Neutrophilic dermatosis [Unknown]
  - Product use in unapproved indication [Unknown]
  - Thrombocytosis [Unknown]
  - Schnitzler^s syndrome [Unknown]
  - Inflammation [Unknown]
  - Drug ineffective [Unknown]
  - Hypergammaglobulinaemia benign monoclonal [Unknown]
  - Weight decreased [Unknown]
  - Pain in extremity [Unknown]
  - Urticaria [Unknown]
